FAERS Safety Report 5280642-4 (Version None)
Quarter: 2007Q1

REPORT INFORMATION
  Report Type: 
  Country: None (occurrence: None)
  Receive Date: 20070322
  Receipt Date: 20070306
  Transmission Date: 20070707
  Serious: Yes (Other)
  Sender: FDA-Public Use
  Company Number: 2007JP001009

PATIENT
  Age: 80 Year
  Sex: Female
  Weight: 43 kg

DRUGS (11)
  1. PROGRAF [Suspect]
     Dates: start: 20061130
  2. EPREX [Suspect]
     Indication: NEPHROGENIC ANAEMIA
     Dosage: 4000 IU, WEEKLY, SUBCUTANEOUS
     Route: 058
     Dates: start: 20050324, end: 20060329
  3. CORTICOSTEROID NOS (CORTICOSTEROID NOS) FORMULATION UNKNOWN [Suspect]
     Dates: start: 20060823
  4. LASIX [Concomitant]
  5. FOLIC ACID [Concomitant]
  6. ATENOLOL [Concomitant]
  7. APRESOLINE [Concomitant]
  8. SUPRALIP (FENOFIBRATE) [Concomitant]
  9. NORVASC [Concomitant]
  10. CALCIUM CARBONATE [Concomitant]
  11. SODAMINT (SODIUM BICARBONATE) [Concomitant]

REACTIONS (7)
  - ANTI-ERYTHROPOIETIN ANTIBODY POSITIVE [None]
  - APLASIA PURE RED CELL [None]
  - DRUG INEFFECTIVE [None]
  - INFLAMMATION [None]
  - IRON DEFICIENCY [None]
  - NEUTRALISING ANTIBODIES POSITIVE [None]
  - THERAPEUTIC RESPONSE DECREASED [None]
